FAERS Safety Report 19131113 (Version 1)
Quarter: 2021Q2

REPORT INFORMATION
  Report Type: Spontaneous
  Country: CN (occurrence: CN)
  Receive Date: 20210414
  Receipt Date: 20210414
  Transmission Date: 20210717
  Serious: Yes (Other)
  Sender: FDA-Public Use
  Company Number: CN-ROCHE-2809271

PATIENT
  Age: 39 Year
  Sex: Male

DRUGS (1)
  1. RANIBIZUMAB. [Suspect]
     Active Substance: RANIBIZUMAB
     Indication: RETINAL VEIN OCCLUSION
     Dosage: 0.5 MG, ONCE/SINGLE
     Route: 031
     Dates: start: 20210403, end: 20210403

REACTIONS (8)
  - Peripheral coldness [Unknown]
  - Rash erythematous [Unknown]
  - Sensation of foreign body [Recovering/Resolving]
  - Dysphagia [Unknown]
  - Heart rate increased [Unknown]
  - Hypersensitivity [Recovered/Resolved]
  - Dyspnoea [Unknown]
  - Laryngeal oedema [Unknown]

NARRATIVE: CASE EVENT DATE: 20210403
